FAERS Safety Report 4340065-9 (Version None)
Quarter: 2004Q2

REPORT INFORMATION
  Report Type: 
  Country: None (occurrence: None)
  Receive Date: 20040412
  Receipt Date: 20040330
  Transmission Date: 20050107
  Serious: Yes (Death)
  Sender: FDA-Public Use
  Company Number: JP-JNJFOC-20040306777

PATIENT
  Age: 81 Year
  Sex: Male

DRUGS (6)
  1. DURAGESIC [Suspect]
     Indication: CANCER PAIN
     Dosage: SEE IMAGE
     Route: 062
     Dates: start: 20040201, end: 20040218
  2. DURAGESIC [Suspect]
     Indication: CANCER PAIN
     Dosage: SEE IMAGE
     Route: 062
     Dates: start: 20040219, end: 20040221
  3. DURAGESIC [Suspect]
     Indication: CANCER PAIN
     Dosage: SEE IMAGE
     Route: 062
     Dates: start: 20040222, end: 20040224
  4. METOCLOPRAMIDE [Concomitant]
  5. MORPHINE [Concomitant]
  6. PROCHLORPERAZINE (PROCHLORPERAZNE) [Concomitant]

REACTIONS (2)
  - GENERAL PHYSICAL CONDITION ABNORMAL [None]
  - INFREQUENT BOWEL MOVEMENTS [None]
